FAERS Safety Report 6100516-6 (Version None)
Quarter: 2009Q1

REPORT INFORMATION
  Report Type: 
  Country: None (occurrence: None)
  Receive Date: 20090303
  Receipt Date: 20090223
  Transmission Date: 20090719
  Serious: Yes (Other)
  Sender: FDA-Public Use
  Company Number: GB-WYE-G03177209

PATIENT
  Age: 10 Year
  Sex: Male

DRUGS (1)
  1. TYGACIL [Suspect]
     Dosage: UNKNOWN

REACTIONS (1)
  - COAGULATION FACTOR XII LEVEL DECREASED [None]
